FAERS Safety Report 6024312-3 (Version None)
Quarter: 2008Q4

REPORT INFORMATION
  Report Type: 
  Country: None (occurrence: None)
  Receive Date: 20081231
  Receipt Date: 20081223
  Transmission Date: 20090506
  Serious: Yes (Other)
  Sender: FDA-Public Use
  Company Number: US-PFIZER INC-2008159243

PATIENT
  Sex: Female

DRUGS (10)
  1. LYRICA [Suspect]
     Indication: FIBROMYALGIA
     Dosage: 50 MG, UNK
     Dates: start: 20080101
  2. SYNTHROID [Suspect]
     Indication: THYROID DISORDER
     Dosage: UNK
  3. GABAPENTIN [Concomitant]
     Dosage: 400 MG, 4X/DAY
  4. TRAMADOL [Concomitant]
     Dosage: 100 MG, 4X/DAY
  5. TRIAMTERENE AND HYDROCHLOROTHIAZIDE [Concomitant]
     Dosage: UNK
  6. PREMARIN [Concomitant]
     Indication: HYSTERECTOMY
     Dosage: UNK
  7. ATENOLOL [Concomitant]
     Indication: BLOOD PRESSURE ABNORMAL
     Dosage: UNK
  8. ATENOLOL [Concomitant]
     Indication: HEART RATE ABNORMAL
  9. CIPROFLOXACIN [Concomitant]
     Indication: EAR INFECTION
     Dosage: UNK
  10. CIPROFLOXACIN [Concomitant]
     Indication: URINARY TRACT INFECTION

REACTIONS (6)
  - BALANCE DISORDER [None]
  - DISTURBANCE IN ATTENTION [None]
  - IMPAIRED HEALING [None]
  - LIMB INJURY [None]
  - MEMORY IMPAIRMENT [None]
  - MUSCULAR WEAKNESS [None]
